FAERS Safety Report 13354848 (Version 2)
Quarter: 2017Q1

REPORT INFORMATION
  Report Type: Spontaneous
  Country: US (occurrence: US)
  Receive Date: 20170321
  Receipt Date: 20170328
  Transmission Date: 20170429
  Serious: Yes (Hospitalization)
  Sender: FDA-Public Use
  Company Number: US-HORIZON-ACT-0055-2017

PATIENT
  Age: 24 Year
  Sex: Male

DRUGS (1)
  1. ACTIMMUNE [Suspect]
     Active Substance: INTERFERON GAMMA-1B
     Indication: CHRONIC GRANULOMATOUS DISEASE
     Dosage: 100 ?G THREE TIMES WEEKLY
     Route: 042
     Dates: start: 20130716

REACTIONS (2)
  - Abscess limb [Recovered/Resolved]
  - Abscess drainage [Recovered/Resolved]

NARRATIVE: CASE EVENT DATE: 20170318
